FAERS Safety Report 23137559 (Version 2)
Quarter: 2023Q4

REPORT INFORMATION
  Report Type: Report from Study
  Country: CA (occurrence: CA)
  Receive Date: 20231102
  Receipt Date: 20231117
  Transmission Date: 20240109
  Serious: Yes (Hospitalization, Other)
  Sender: FDA-Public Use
  Company Number: CA-JNJFOC-20230952608

PATIENT
  Age: 68 Year
  Sex: Male
  Weight: 58 kg

DRUGS (2)
  1. REMICADE [Suspect]
     Active Substance: INFLIXIMAB
     Indication: Crohn^s disease
     Dosage: THERAPY START DATE-26/MAY/2016?LAST DOSE- 21-SEP-2023
     Route: 041
     Dates: start: 20101220
  2. REMICADE [Suspect]
     Active Substance: INFLIXIMAB
     Route: 041
     Dates: start: 20231021

REACTIONS (7)
  - Tongue ulceration [Recovering/Resolving]
  - Pneumonitis [Unknown]
  - Intestinal operation [Unknown]
  - Gastric ulcer [Unknown]
  - Crohn^s disease [Unknown]
  - Lip ulceration [Unknown]
  - Weight decreased [Unknown]

NARRATIVE: CASE EVENT DATE: 20230101
